FAERS Safety Report 17699386 (Version 4)
Quarter: 2020Q2

REPORT INFORMATION
  Report Type: Spontaneous
  Country: US (occurrence: US)
  Receive Date: 20200423
  Receipt Date: 20200609
  Transmission Date: 20200714
  Serious: No
  Sender: FDA-Public Use
  Company Number: US-PFIZER INC-2020149621

PATIENT
  Age: 60 Year
  Sex: Female
  Weight: 102 kg

DRUGS (1)
  1. XALKORI [Suspect]
     Active Substance: CRIZOTINIB
     Indication: LUNG NEOPLASM MALIGNANT
     Dosage: 250 MG, 2X/DAY
     Route: 048
     Dates: start: 201901

REACTIONS (8)
  - Throat irritation [Unknown]
  - Eye disorder [Unknown]
  - Product dose omission [Unknown]
  - Condition aggravated [Unknown]
  - Product quality issue [Unknown]
  - Product physical issue [Unknown]
  - Poor quality product administered [Unknown]
  - Product residue present [Unknown]

NARRATIVE: CASE EVENT DATE: 20200408
